FAERS Safety Report 4804969-2 (Version None)
Quarter: 2005Q4

REPORT INFORMATION
  Report Type: 
  Country: None (occurrence: None)
  Receive Date: 20051012
  Receipt Date: 20050902
  Transmission Date: 20060501
  Serious: No
  Sender: FDA-Public Use
  Company Number: SAGL-ZLB/05/74/UNK

PATIENT
  Age: 26 Year
  Sex: Male
  Weight: 77 kg

DRUGS (12)
  1. SANDOGLOBULIN (IMMUNOGLOBULIN HUMAN NORMAL) (ZLB BEHRING) [Suspect]
     Indication: ANTIBODY TEST ABNORMAL
     Dosage: 36 G Q3W IV
     Route: 042
     Dates: start: 19920101
  2. SANDOGLOBULIN (IMMUNOGLOBULIN HUMAN NORMAL) (ZLB BEHRING) [Suspect]
     Indication: ANTIBODY TEST ABNORMAL
     Dosage: IV
     Route: 042
     Dates: start: 20041104
  3. SANDOGLOBULIN (IMMUNOGLOBULIN HUMAN NORMAL) (ZLB BEHRING) [Suspect]
     Indication: ANTIBODY TEST ABNORMAL
     Dosage: IV
     Route: 042
     Dates: start: 20050103
  4. SANDOGLOBULIN (IMMUNOGLOBULIN HUMAN NORMAL) (ZLB BEHRING) [Suspect]
     Indication: ANTIBODY TEST ABNORMAL
     Dosage: IV
     Route: 042
     Dates: start: 20050206
  5. SANDOGLOBULIN (IMMUNOGLOBULIN HUMAN NORMAL) (ZLB BEHRING) [Suspect]
     Indication: ANTIBODY TEST ABNORMAL
     Dosage: IV
     Route: 042
     Dates: start: 20050227
  6. SANDOGLOBULIN (IMMUNOGLOBULIN HUMAN NORMAL) (ZLB BEHRING) [Suspect]
     Indication: ANTIBODY TEST ABNORMAL
     Dosage: IV
     Route: 042
     Dates: start: 20050320
  7. SANDOGLOBULIN (IMMUNOGLOBULIN HUMAN NORMAL) (ZLB BEHRING) [Suspect]
     Indication: ANTIBODY TEST ABNORMAL
     Dosage: IV
     Route: 042
     Dates: start: 20050409
  8. SANDOGLOBULIN (IMMUNOGLOBULIN HUMAN NORMAL) (ZLB BEHRING) [Suspect]
     Indication: ANTIBODY TEST ABNORMAL
     Dosage: IV
     Route: 042
     Dates: start: 20050601
  9. SANDOGLOBULIN (IMMUNOGLOBULIN HUMAN NORMAL) (ZLB BEHRING) [Suspect]
     Indication: ANTIBODY TEST ABNORMAL
     Dosage: IV
     Route: 042
     Dates: start: 20050501
  10. SANDOGLOBULIN (IMMUNOGLOBULIN HUMAN NORMAL) (ZLB BEHRING) [Suspect]
     Indication: ANTIBODY TEST ABNORMAL
     Dosage: IV
     Route: 042
     Dates: start: 20050701
  11. SANDOGLOBULIN (IMMUNOGLOBULIN HUMAN NORMAL) (ZLB BEHRING) [Suspect]
     Indication: ANTIBODY TEST ABNORMAL
     Dosage: IV
     Route: 042
     Dates: start: 20050829
  12. CIPROFLOXACIN [Concomitant]

REACTIONS (3)
  - EMOTIONAL DISTRESS [None]
  - FALSE POSITIVE LABORATORY RESULT [None]
  - HEPATITIS C POSITIVE [None]
